FAERS Safety Report 9012539 (Version 6)
Quarter: 2014Q1

REPORT INFORMATION
  Report Type: Spontaneous
  Country: US (occurrence: US)
  Receive Date: 20130114
  Receipt Date: 20140117
  Transmission Date: 20141002
  Serious: Yes (Hospitalization)
  Sender: FDA-Public Use
  Company Number: US-009507513-1301USA005244

PATIENT
  Sex: Female
  Weight: 97.51 kg

DRUGS (2)
  1. NUVARING [Suspect]
     Indication: CONTRACEPTION
     Dosage: UNK
     Route: 067
     Dates: start: 200209, end: 200607
  2. NUVARING [Suspect]
     Indication: MENSTRUATION IRREGULAR

REACTIONS (13)
  - Deep vein thrombosis [Unknown]
  - Coagulopathy [Unknown]
  - Local swelling [Unknown]
  - Off label use [Recovered/Resolved]
  - Skin papilloma [Unknown]
  - Weight increased [Unknown]
  - Cystitis [Unknown]
  - Muscle spasms [Unknown]
  - Post thrombotic syndrome [Unknown]
  - Venous insufficiency [Unknown]
  - Skin lesion excision [Unknown]
  - Skin lesion [Unknown]
  - Menorrhagia [Unknown]
